FAERS Safety Report 13427945 (Version 1)
Quarter: 2017Q2

REPORT INFORMATION
  Report Type: Spontaneous
  Country: US (occurrence: US)
  Receive Date: 20170411
  Receipt Date: 20170411
  Transmission Date: 20170830
  Serious: No
  Sender: FDA-Public Use
  Company Number: US-JUBILANT CADISTA PHARMACEUTICALS-2016JUB00171

PATIENT
  Sex: Female
  Weight: 40.82 kg

DRUGS (1)
  1. ALENDRONATE [Suspect]
     Active Substance: ALENDRONATE SODIUM
     Dosage: 70 MG, 1X/WEEK

REACTIONS (4)
  - Myalgia [Recovered/Resolved]
  - Heart rate increased [Unknown]
  - Visual impairment [Unknown]
  - Arthralgia [Recovered/Resolved]
